FAERS Safety Report 15380180 (Version 1)
Quarter: 2018Q3

REPORT INFORMATION
  Report Type: Not Available
  Country: US (occurrence: US)
  Receive Date: 20180913
  Receipt Date: 20180913
  Transmission Date: 20181010
  Serious: Yes (Hospitalization)
  Sender: FDA-Public Use
  Company Number: US-NEUROCRINE BIOSCIENCES INC.-2018NBI02743

PATIENT
  Sex: Male

DRUGS (7)
  1. INGREZZA [Suspect]
     Active Substance: VALBENAZINE
     Route: 048
     Dates: start: 20170828
  2. RISPERIDONE. [Concomitant]
     Active Substance: RISPERIDONE
  3. TRAZODONE [Concomitant]
     Active Substance: TRAZODONE HYDROCHLORIDE
  4. PRAVASTATIN. [Concomitant]
     Active Substance: PRAVASTATIN
  5. MELOXICAM. [Concomitant]
     Active Substance: MELOXICAM
  6. INGREZZA [Suspect]
     Active Substance: VALBENAZINE
     Indication: PRODUCT USED FOR UNKNOWN INDICATION
     Route: 048
     Dates: start: 20170821, end: 20170827
  7. BENZTROPINE. [Concomitant]
     Active Substance: BENZTROPINE

REACTIONS (1)
  - Hospitalisation [Unknown]
